FAERS Safety Report 17110492 (Version 1)
Quarter: 2019Q4

REPORT INFORMATION
  Report Type: Spontaneous
  Country: US (occurrence: US)
  Receive Date: 20191108
  Receipt Date: 20191108
  Transmission Date: 20200122
  Serious: Yes (Hospitalization)
  Sender: FDA-Public Use
  Company Number: None

PATIENT
  Age: 61 Year
  Sex: Male

DRUGS (12)
  1. COLESTIPOL [Concomitant]
     Active Substance: COLESTIPOL
  2. ANASTROZOLE. [Concomitant]
     Active Substance: ANASTROZOLE
  3. PANTOPRAZOLE [Concomitant]
     Active Substance: PANTOPRAZOLE
  4. CYCLOBENZAPR [Concomitant]
     Active Substance: CYCLOBENZAPRINE
  5. PREDNISONE. [Concomitant]
     Active Substance: PREDNISONE
  6. STELARA [Suspect]
     Active Substance: USTEKINUMAB
     Indication: HYPERTENSION
     Dosage: ?          OTHER FREQUENCY:Q8WK;?
     Route: 058
     Dates: start: 20190727
  7. CHOLESTYRAM [Concomitant]
     Active Substance: CHOLESTYRAMINE
  8. HYDROCHLOROT [Concomitant]
     Active Substance: HYDROCHLOROTHIAZIDE
  9. HYOSCYAMINE. [Concomitant]
     Active Substance: HYOSCYAMINE
  10. HYDROCO/APAP [Concomitant]
     Active Substance: ACETAMINOPHEN\HYDROCODONE
  11. RAMIPRIL. [Concomitant]
     Active Substance: RAMIPRIL
  12. ROSUVASTATIN. [Concomitant]
     Active Substance: ROSUVASTATIN

REACTIONS (2)
  - Arthralgia [None]
  - Diarrhoea [None]

NARRATIVE: CASE EVENT DATE: 20191001
